FAERS Safety Report 25722128 (Version 1)
Quarter: 2025Q3

REPORT INFORMATION
  Report Type: Spontaneous
  Country: US (occurrence: None)
  Receive Date: 20250824
  Receipt Date: 20250824
  Transmission Date: 20251020
  Serious: Yes (Hospitalization)
  Sender: FDA-CTU
  Company Number: None

PATIENT
  Age: 37 Year
  Sex: Female
  Weight: 57.6 kg

DRUGS (3)
  1. DEXAMETHASONE [Suspect]
     Active Substance: DEXAMETHASONE
     Indication: Ear infection
     Dates: start: 20230224, end: 20230228
  2. ABILIFY [Concomitant]
     Active Substance: ARIPIPRAZOLE
  3. LAMOTRIGINE [Concomitant]
     Active Substance: LAMOTRIGINE

REACTIONS (3)
  - Mania [None]
  - Arthropod bite [None]
  - Infected bite [None]

NARRATIVE: CASE EVENT DATE: 20230224
